FAERS Safety Report 16472922 (Version 2)
Quarter: 2020Q2

REPORT INFORMATION
  Report Type: Report from Study
  Country: US (occurrence: US)
  Receive Date: 20190625
  Receipt Date: 20200520
  Transmission Date: 20200713
  Serious: Yes (Other)
  Sender: FDA-Public Use
  Company Number: PHHY2016US113071

PATIENT
  Age: 45 Year
  Sex: Male

DRUGS (1)
  1. GILENYA [Suspect]
     Active Substance: FINGOLIMOD HYDROCHLORIDE
     Indication: MULTIPLE SCLEROSIS
     Dosage: UNK, QD
     Route: 048

REACTIONS (8)
  - Tremor [Unknown]
  - Sinusitis [Recovered/Resolved]
  - Headache [Recovered/Resolved]
  - Alanine aminotransferase increased [Recovered/Resolved]
  - Muscle spasms [Unknown]
  - Lymphocyte count decreased [Unknown]
  - Melanocytic naevus [Recovered/Resolved]
  - Viral rhinitis [Recovered/Resolved]

NARRATIVE: CASE EVENT DATE: 20150823
